FAERS Safety Report 7884777-9 (Version None)
Quarter: 2011Q4

REPORT INFORMATION
  Report Type: 
  Country: None (occurrence: None)
  Receive Date: 20111102
  Receipt Date: 20111031
  Transmission Date: 20120403
  Serious: Yes (Hospitalization)
  Sender: FDA-Public Use
  Company Number: IL-AMGEN-ISRSP2011053390

PATIENT
  Age: 19 Year
  Sex: Female

DRUGS (3)
  1. NPLATE [Suspect]
     Indication: IDIOPATHIC THROMBOCYTOPENIC PURPURA
     Dosage: 250 MUG, QWK
     Dates: start: 20110914
  2. RISPOND [Concomitant]
     Dosage: 1 MG, UNK
  3. EVOREL [Concomitant]
     Dosage: UNK

REACTIONS (1)
  - EPISTAXIS [None]
